FAERS Safety Report 6703510-7 (Version None)
Quarter: 2010Q2

REPORT INFORMATION
  Report Type: 
  Country: None (occurrence: None)
  Receive Date: 20100430
  Receipt Date: 20100419
  Transmission Date: 20101027
  Serious: Yes (Other)
  Sender: FDA-Public Use
  Company Number: PHHY2010DE11803

PATIENT
  Sex: Male

DRUGS (3)
  1. LEPONEX [Suspect]
     Indication: PSYCHOTIC DISORDER
     Dosage: 150 MG IN EVENING
     Route: 048
     Dates: start: 20030401
  2. VALPROIC ACID [Suspect]
     Indication: AFFECT LABILITY
     Dosage: 3X600 MG/DAY
     Route: 048
     Dates: start: 20080201
  3. SOLIAN [Concomitant]
     Indication: PSYCHOTIC DISORDER
     Dosage: 2 X 300 MG/DAY
     Route: 048
     Dates: start: 20030601

REACTIONS (3)
  - INFERTILITY MALE [None]
  - SPERM COUNT DECREASED [None]
  - SPERMATOZOA PROGRESSIVE MOTILITY DECREASED [None]
